FAERS Safety Report 6303216-2 (Version None)
Quarter: 2009Q3

REPORT INFORMATION
  Report Type: 
  Country: None (occurrence: None)
  Receive Date: 20090810
  Receipt Date: 20090122
  Transmission Date: 20100115
  Serious: No
  Sender: FDA-Public Use
  Company Number: A0764822A

PATIENT
  Age: 93 Year
  Sex: Female

DRUGS (5)
  1. PAROXETINE HCL [Suspect]
     Indication: DEPRESSION
     Dosage: 10MG PER DAY
     Route: 048
     Dates: start: 19920101
  2. TRAZODONE HCL [Concomitant]
  3. TRIFLUOPERAZINE [Concomitant]
  4. DILTIAZEM [Concomitant]
  5. VIT E FORTE [Concomitant]

REACTIONS (2)
  - INITIAL INSOMNIA [None]
  - MUSCLE TWITCHING [None]
